FAERS Safety Report 11742004 (Version 1)
Quarter: 2015Q4

REPORT INFORMATION
  Report Type: Spontaneous
  Country: US (occurrence: US)
  Receive Date: 20151116
  Receipt Date: 20151116
  Transmission Date: 20160304
  Serious: No
  Sender: FDA-Public Use
  Company Number: US-ASTRAZENECA-2015SF05311

PATIENT
  Age: 18882 Day
  Sex: Female
  Weight: 61.2 kg

DRUGS (1)
  1. PULMICORT FLEXHALER [Suspect]
     Active Substance: BUDESONIDE
     Indication: ASTHMA
     Dosage: 180MCG, ONE INHALATION TWICE DAILY.
     Route: 055

REACTIONS (3)
  - Product quality issue [Unknown]
  - Chest discomfort [Not Recovered/Not Resolved]
  - Asthma [Recovered/Resolved]

NARRATIVE: CASE EVENT DATE: 20151018
